FAERS Safety Report 21669951 (Version 2)
Quarter: 2022Q4

REPORT INFORMATION
  Report Type: Spontaneous
  Country: ES (occurrence: ES)
  Receive Date: 20221201
  Receipt Date: 20221209
  Transmission Date: 20230113
  Serious: Yes (Life-Threatening, Hospitalization)
  Sender: FDA-Public Use
  Company Number: ES-MYLANLABS-2022M1134718

PATIENT
  Age: 42 Year
  Sex: Male

DRUGS (5)
  1. OLANZAPINE [Suspect]
     Active Substance: OLANZAPINE
     Indication: Bipolar I disorder
     Dosage: 10 MILLIGRAM (10-10-10 MG)
     Route: 065
  2. LITHIUM CARBONATE [Suspect]
     Active Substance: LITHIUM CARBONATE
     Indication: Bipolar I disorder
     Dosage: 400 MILLIGRAM (400-200-400 MG)
     Route: 065
  3. LITHIUM CARBONATE [Suspect]
     Active Substance: LITHIUM CARBONATE
     Dosage: 200 MILLIGRAM
     Route: 065
  4. VALPROIC ACID [Suspect]
     Active Substance: VALPROIC ACID
     Indication: Epilepsy
     Dosage: 500 MILLIGRAM (500-500-500 MG)
     Route: 065
  5. CLONAZEPAM [Suspect]
     Active Substance: CLONAZEPAM
     Indication: Bipolar I disorder
     Dosage: 1 MILLIGRAM (1-1-1 MG)
     Route: 065

REACTIONS (4)
  - Toxicity to various agents [Recovering/Resolving]
  - Hyperthermia [Recovering/Resolving]
  - Hypotension [Recovering/Resolving]
  - Hyponatraemia [Recovering/Resolving]
